FAERS Safety Report 9283284 (Version 1)
Quarter: 2013Q2

REPORT INFORMATION
  Report Type: Spontaneous
  Country: US (occurrence: US)
  Receive Date: 20130510
  Receipt Date: 20130510
  Transmission Date: 20140414
  Serious: No
  Sender: FDA-Public Use
  Company Number: US-GLAXOSMITHKLINE-A0994084A

PATIENT
  Age: 53 Year
  Sex: Female

DRUGS (4)
  1. TYKERB [Suspect]
     Indication: BREAST CANCER
     Dosage: 1250MG PER DAY
     Route: 065
  2. XELODA [Concomitant]
     Dosage: 4TAB TWICE PER DAY
  3. ZOFRAN [Concomitant]
     Dosage: 4MG THREE TIMES PER DAY
     Route: 048
  4. HYDROMORPHONE [Concomitant]

REACTIONS (1)
  - Skin hyperpigmentation [Not Recovered/Not Resolved]
